FAERS Safety Report 13544622 (Version 1)
Quarter: 2017Q2

REPORT INFORMATION
  Report Type: Spontaneous
  Country: US (occurrence: US)
  Receive Date: 20170512
  Receipt Date: 20170512
  Transmission Date: 20170830
  Serious: Yes (Other)
  Sender: FDA-Public Use
  Company Number: None

PATIENT
  Age: 30 Year
  Sex: Female
  Weight: 83.99 kg

DRUGS (2)
  1. TALTZ [Suspect]
     Active Substance: IXEKIZUMAB
     Indication: PSORIATIC ARTHROPATHY
     Dosage: 80MG/ML, 2X1ML EVERY 2 WKS SUB Q INJECTION
     Route: 058
  2. TALTZ [Suspect]
     Active Substance: IXEKIZUMAB
     Indication: PSORIASIS
     Dosage: 80MG/ML, 2X1ML EVERY 2 WKS SUB Q INJECTION
     Route: 058

REACTIONS (4)
  - Injection site reaction [None]
  - Injection site swelling [None]
  - Injection site warmth [None]
  - Psoriasis [None]

NARRATIVE: CASE EVENT DATE: 20170511
